FAERS Safety Report 5094118-0 (Version None)
Quarter: 2006Q3

REPORT INFORMATION
  Report Type: 
  Country: None (occurrence: None)
  Receive Date: 20060831
  Receipt Date: 20060825
  Transmission Date: 20061208
  Serious: Yes (Other)
  Sender: FDA-Public Use
  Company Number: US-MERCK-0608USA06242

PATIENT
  Sex: Female

DRUGS (2)
  1. SINGULAIR [Suspect]
     Indication: ASTHMA
     Route: 048
     Dates: end: 20060101
  2. LIPITOR [Concomitant]
     Route: 065
     Dates: end: 20060101

REACTIONS (1)
  - ALLERGIC GRANULOMATOUS ANGIITIS [None]
